FAERS Safety Report 22901051 (Version 11)
Quarter: 2025Q3

REPORT INFORMATION
  Report Type: Report from Study
  Country: EU (occurrence: EU)
  Receive Date: 20230904
  Receipt Date: 20250903
  Transmission Date: 20251021
  Serious: Yes (Hospitalization, Other)
  Sender: TAKEDA
  Company Number: EU-TAKEDA-2021TUS044232

PATIENT
  Age: 14 Year
  Sex: Male

DRUGS (11)
  1. IDURSULFASE [Suspect]
     Active Substance: IDURSULFASE
     Indication: Mucopolysaccharidosis II
     Dosage: 5 DOSAGE FORM, 1/WEEK
     Dates: start: 2009
  2. IDURSULFASE [Suspect]
     Active Substance: IDURSULFASE
     Dosage: 5 DOSAGE FORM, 1/WEEK
  3. IDURSULFASE [Suspect]
     Active Substance: IDURSULFASE
     Dosage: 5 DOSAGE FORM, 1/WEEK
  4. IDURSULFASE [Suspect]
     Active Substance: IDURSULFASE
     Dosage: 5 DOSAGE FORM, 1/WEEK
  5. IDURSULFASE [Suspect]
     Active Substance: IDURSULFASE
     Dosage: 5 DOSAGE FORM, 1/WEEK
  6. IDURSULFASE [Suspect]
     Active Substance: IDURSULFASE
     Dosage: 5 DOSAGE FORM, 1/WEEK
  7. IDURSULFASE [Suspect]
     Active Substance: IDURSULFASE
     Dosage: 5 DOSAGE FORM, 1/WEEK
  8. IDURSULFASE [Suspect]
     Active Substance: IDURSULFASE
     Dosage: UNK UNK, 1/WEEK
  9. IDURSULFASE [Suspect]
     Active Substance: IDURSULFASE
     Dosage: UNK UNK, 1/WEEK
  10. IDURSULFASE [Suspect]
     Active Substance: IDURSULFASE
     Dosage: UNK UNK, 1/WEEK
  11. IDURSULFASE [Suspect]
     Active Substance: IDURSULFASE
     Dosage: UNK UNK, 1/WEEK

REACTIONS (9)
  - Umbilical hernia [Not Recovered/Not Resolved]
  - Hyperpyrexia [Recovered/Resolved]
  - Influenza [Not Recovered/Not Resolved]
  - Influenza like illness [Not Recovered/Not Resolved]
  - Product dose omission issue [Not Recovered/Not Resolved]
  - Circumstance or information capable of leading to medication error [Not Recovered/Not Resolved]
  - Oral herpes [Recovered/Resolved]
  - COVID-19 [Recovered/Resolved]
  - Pyrexia [Not Recovered/Not Resolved]

NARRATIVE: CASE EVENT DATE: 20210706
